FAERS Safety Report 8094658-6 (Version None)
Quarter: 2012Q1

REPORT INFORMATION
  Report Type: 
  Country: None (occurrence: None)
  Receive Date: 20120131
  Receipt Date: 20111205
  Transmission Date: 20120608
  Serious: No
  Sender: FDA-Public Use
  Company Number: US-ABBOTT-11P-163-0881379-00

PATIENT
  Sex: Female
  Weight: 104.42 kg

DRUGS (6)
  1. PREDNISONE TAB [Concomitant]
     Indication: PANCREATITIS
  2. THYROID TAB [Concomitant]
     Indication: THYROID DISORDER
  3. HYDROCORTISONE [Concomitant]
     Indication: HYPOPITUITARISM
  4. ESTRACE [Concomitant]
     Indication: PRODUCT USED FOR UNKNOWN INDICATION
  5. PRASTERONE [Concomitant]
     Indication: THYROID DISORDER
  6. CREON [Suspect]
     Indication: PANCREATITIS CHRONIC
     Dates: start: 20110501

REACTIONS (8)
  - MUSCLE SPASMS [None]
  - MYALGIA [None]
  - DYSPHONIA [None]
  - SINUS HEADACHE [None]
  - SINUS DISORDER [None]
  - THROAT IRRITATION [None]
  - UPPER-AIRWAY COUGH SYNDROME [None]
  - EAR DISCOMFORT [None]
